FAERS Safety Report 23228385 (Version 2)
Quarter: 2024Q1

REPORT INFORMATION
  Report Type: Report from Study
  Country: US (occurrence: US)
  Receive Date: 20231125
  Receipt Date: 20240122
  Transmission Date: 20240410
  Serious: Yes (Other)
  Sender: FDA-Public Use
  Company Number: US-002147023-NVSC2023US249853

PATIENT

DRUGS (2)
  1. KESIMPTA [Suspect]
     Active Substance: OFATUMUMAB
     Indication: Product used for unknown indication
     Dosage: UNK
     Route: 065
     Dates: start: 20231004
  2. KESIMPTA [Suspect]
     Active Substance: OFATUMUMAB
     Dosage: UNK
     Route: 065
     Dates: start: 20240101

REACTIONS (6)
  - Glaucoma [Unknown]
  - Ear infection [Unknown]
  - Tympanic membrane perforation [Unknown]
  - Oropharyngeal pain [Unknown]
  - Platelet count increased [Unknown]
  - Influenza like illness [Unknown]
